FAERS Safety Report 23409832 (Version 5)
Quarter: 2025Q1

REPORT INFORMATION
  Report Type: Spontaneous
  Country: US (occurrence: US)
  Receive Date: 20240117
  Receipt Date: 20250220
  Transmission Date: 20250408
  Serious: No
  Sender: PFIZER
  Company Number: US-PFIZER INC-202400011998

PATIENT
  Age: 68 Year
  Sex: Female
  Weight: 71.655 kg

DRUGS (8)
  1. IBRANCE [Suspect]
     Active Substance: PALBOCICLIB
     Indication: Breast cancer female
     Route: 048
     Dates: start: 201902, end: 202312
  2. IBRANCE [Suspect]
     Active Substance: PALBOCICLIB
     Indication: Breast cancer stage IV
  3. XGEVA [Suspect]
     Active Substance: DENOSUMAB
     Indication: Breast cancer female
  4. METFORMIN [Suspect]
     Active Substance: METFORMIN HYDROCHLORIDE
     Indication: Diabetes mellitus
     Dosage: 100 MG, 1X/DAY (ONCE A DAY)
     Route: 048
  5. OZEMPIC [Suspect]
     Active Substance: SEMAGLUTIDE
     Indication: Diabetes mellitus
  6. LETROZOLE [Concomitant]
     Active Substance: LETROZOLE
     Indication: Breast cancer
     Dosage: 2.5 MG, DAILY (EVERY DAY)
     Route: 048
     Dates: start: 2021
  7. ATORVASTATIN [Concomitant]
     Active Substance: ATORVASTATIN
     Indication: Blood cholesterol
     Dosage: 10 MG, DAILY (EVERY DAY)
     Route: 048
  8. BENAZEPRIL HYDROCHLORIDE AND HYDROCHLOROTHIAZIDE [Concomitant]
     Active Substance: BENAZEPRIL HYDROCHLORIDE\HYDROCHLOROTHIAZIDE
     Indication: Hypertension
     Dosage: UNK, DAILY (10 TO 12.5 MG TABLET EVERY DAY)
     Route: 048

REACTIONS (2)
  - Renal disorder [Not Recovered/Not Resolved]
  - Blood creatinine increased [Recovering/Resolving]

NARRATIVE: CASE EVENT DATE: 20231201
